FAERS Safety Report 13450660 (Version 1)
Quarter: 2017Q2

REPORT INFORMATION
  Report Type: Spontaneous
  Country: US (occurrence: US)
  Receive Date: 20170418
  Receipt Date: 20170418
  Transmission Date: 20170830
  Serious: No
  Sender: FDA-Public Use
  Company Number: US-B.I. PHARMACEUTICALS,INC./RIDGEFIELD-2017-BI-021769

PATIENT
  Sex: Female

DRUGS (1)
  1. MIRAPEX [Suspect]
     Active Substance: PRAMIPEXOLE DIHYDROCHLORIDE
     Indication: MUSCLE SPASMS
     Dosage: FORM STRENGTH: 0.75 MG; FORMULATION: TABLET? ADMINISTRATION CORRECT? NR(NOT REPORTED)
     Route: 065
     Dates: start: 201405, end: 201703

REACTIONS (7)
  - Nausea [Unknown]
  - Erythema [Unknown]
  - Hot flush [Unknown]
  - Dyspnoea [Unknown]
  - Rash [Unknown]
  - Peripheral swelling [Unknown]
  - Swelling face [Unknown]

NARRATIVE: CASE EVENT DATE: 201610
